FAERS Safety Report 7236552-6 (Version None)
Quarter: 2011Q1

REPORT INFORMATION
  Report Type: 
  Country: None (occurrence: None)
  Receive Date: 20110120
  Receipt Date: 20110112
  Transmission Date: 20110831
  Serious: Yes (Hospitalization)
  Sender: FDA-Public Use
  Company Number: ES-ASTRAZENECA-2011SE02502

PATIENT
  Age: 66 Year
  Sex: Female

DRUGS (4)
  1. TENORETIC 100 [Suspect]
     Indication: HYPERTENSION
     Dosage: 100 MG/25 MG
     Route: 048
     Dates: start: 20090101, end: 20090923
  2. CEPRANDAL [Concomitant]
     Route: 048
  3. EUTIROX [Concomitant]
     Indication: PRIMARY HYPOTHYROIDISM
     Route: 048
  4. EZETROL [Concomitant]
     Indication: HYPERCHOLESTEROLAEMIA
     Route: 048

REACTIONS (3)
  - HYPOKALAEMIA [None]
  - SINUS BRADYCARDIA [None]
  - ABDOMINAL PAIN [None]
